FAERS Safety Report 14910532 (Version 5)
Quarter: 2022Q1

REPORT INFORMATION
  Report Type: Spontaneous
  Country: None (occurrence: DE)
  Receive Date: 20180517
  Receipt Date: 20220126
  Transmission Date: 20220423
  Serious: Yes (Disabling)
  Sender: FDA-Public Use
  Company Number: DE-ASCEND THERAPEUTICS-2048018

PATIENT
  Age: 79 Year
  Sex: Female

DRUGS (13)
  1. ESTROGEL [Suspect]
     Active Substance: ESTRADIOL
     Indication: Menopausal symptoms
     Route: 062
     Dates: start: 201403
  2. ESTRADIOL [Suspect]
     Active Substance: ESTRADIOL
     Route: 062
     Dates: start: 20180404
  3. UTROGESTAN [Suspect]
     Active Substance: PROGESTERONE
     Route: 065
     Dates: start: 201403
  4. Concor 5 (bisoprolol fumarate) [Concomitant]
     Route: 048
  5. VIMPAT [Concomitant]
     Active Substance: LACOSAMIDE
     Route: 048
     Dates: start: 1999
  6. CITALOPRAM HYDROBROMIDE [Concomitant]
     Active Substance: CITALOPRAM HYDROBROMIDE
     Route: 048
  7. Budenofalk 3 (budesonide) [Concomitant]
     Route: 048
  8. Budenofalk 3 (budesonide) [Concomitant]
     Route: 048
  9. ATORVASTATIN [Concomitant]
     Active Substance: ATORVASTATIN
     Route: 048
  10. ASPIRIN [Concomitant]
     Active Substance: ASPIRIN
     Route: 048
  11. ESTRADIOL [Suspect]
     Active Substance: ESTRADIOL
     Route: 062
     Dates: start: 201403
  12. UTROGESTAN [Suspect]
     Active Substance: PROGESTERONE
     Route: 067
  13. PROGESTERONE [Suspect]
     Active Substance: PROGESTERONE
     Route: 065
     Dates: start: 201403

REACTIONS (4)
  - Pain in extremity [Not Recovered/Not Resolved]
  - Oestradiol decreased [Unknown]
  - Hot flush [Not Recovered/Not Resolved]
  - Product use in unapproved indication [None]

NARRATIVE: CASE EVENT DATE: 20140301
